FAERS Safety Report 6369408-1 (Version None)
Quarter: 2009Q3

REPORT INFORMATION
  Report Type: 
  Country: None (occurrence: None)
  Receive Date: 20090917
  Receipt Date: 20090910
  Transmission Date: 20100115
  Serious: Yes (Hospitalization)
  Sender: FDA-Public Use
  Company Number: 2008AL009032

PATIENT
  Age: 53 Year
  Sex: Male
  Weight: 110 kg

DRUGS (51)
  1. DIGOXIN [Suspect]
     Indication: CARDIAC DISORDER
     Dosage: 0.125MG, PO
     Route: 048
  2. ASPIRIN [Concomitant]
  3. CARVEDILOL [Concomitant]
  4. CLOPIDOGREL [Concomitant]
  5. ADVAIR DISKUS 100/50 [Concomitant]
  6. FUROSEMIDE [Concomitant]
  7. HYDRALAZINE [Concomitant]
  8. HYDROCODONE [Concomitant]
  9. LANTUS [Concomitant]
  10. NOVOLOG [Concomitant]
  11. ISOSORBIDE [Concomitant]
  12. MAGNESIUM OXIDE [Concomitant]
  13. NITROGLYCERIN [Concomitant]
  14. POTASSIUM CHLORIDE [Concomitant]
  15. PROPOXYPHENE HCL CAP [Concomitant]
  16. SPIRIVA [Concomitant]
  17. ACETAMINOPHEN [Concomitant]
  18. VICODIN [Concomitant]
  19. CRESTOR [Concomitant]
  20. ALTACE [Concomitant]
  21. METOPROLOL SUCCINATE [Concomitant]
  22. SPIRONOLACTONE [Concomitant]
  23. ATACAND [Concomitant]
  24. GLYBURIDE AND METFORMIN HCL [Concomitant]
  25. CLOPIDOGREL BISULFATE [Concomitant]
  26. STARLIX [Concomitant]
  27. PLAVIX [Concomitant]
  28. JANUVIA [Concomitant]
  29. KLOR-CON [Concomitant]
  30. MUSE [Concomitant]
  31. FEXOFENADINE HCL [Concomitant]
  32. AZITHROMYCIN [Concomitant]
  33. ALBUTEROL [Concomitant]
  34. METHYLPREDNISOLONE 4MG TAB [Concomitant]
  35. PROPOXYPHENE HCL AND ACETAMINOPHEN [Concomitant]
  36. MELOXICAM [Concomitant]
  37. DOXYCYCLINE HYCLATE [Concomitant]
  38. PROAIR HFA [Concomitant]
  39. LEVAQUIN [Concomitant]
  40. PREDNISONE TAB [Concomitant]
  41. SULFAMETHOXAZOLE AND TRIMETHOPRIM [Concomitant]
  42. DIAZEPAM [Concomitant]
  43. NOVOFINE [Concomitant]
  44. LACTULOSE [Concomitant]
  45. LIDODERM [Concomitant]
  46. GABAPENTIN [Concomitant]
  47. OXYCONTIN [Concomitant]
  48. DICLOFENAC SODIUM [Concomitant]
  49. CARISOPRODOL [Concomitant]
  50. NAPROXEN SODIUM [Concomitant]
  51. TRAMADOL HCL [Concomitant]

REACTIONS (9)
  - ADVERSE EVENT [None]
  - ANGINA PECTORIS [None]
  - CARDIAC FAILURE CONGESTIVE [None]
  - CHEST PAIN [None]
  - CONGESTIVE CARDIOMYOPATHY [None]
  - HYPERCHOLESTEROLAEMIA [None]
  - HYPERTENSION [None]
  - MULTIPLE INJURIES [None]
  - RENAL FAILURE CHRONIC [None]
